FAERS Safety Report 25812299 (Version 1)
Quarter: 2025Q3

REPORT INFORMATION
  Report Type: Spontaneous
  Country: US (occurrence: None)
  Receive Date: 20250916
  Receipt Date: 20250916
  Transmission Date: 20251020
  Serious: Yes (unspecified)
  Sender: FDA-CTU
  Company Number: None

PATIENT
  Age: 27 Year
  Sex: Female
  Weight: 81 kg

DRUGS (5)
  1. VTAMA [Suspect]
     Active Substance: TAPINAROF
     Indication: Eczema
     Dates: start: 20250801, end: 20250801
  2. DUPIXENT [Concomitant]
     Active Substance: DUPILUMAB
  3. TACROLIMUS [Concomitant]
     Active Substance: TACROLIMUS
  4. birth control (combination pills) [Concomitant]
  5. CLOBETASOL [Concomitant]
     Active Substance: CLOBETASOL

REACTIONS (1)
  - Hypersensitivity [None]

NARRATIVE: CASE EVENT DATE: 20250803
